FAERS Safety Report 9218612 (Version 1)
Quarter: 2013Q2

REPORT INFORMATION
  Report Type: Report from Study
  Country: JP (occurrence: JP)
  Receive Date: 20130409
  Receipt Date: 20130409
  Transmission Date: 20140414
  Serious: Yes (Hospitalization)
  Sender: FDA-Public Use
  Company Number: JP-GENZYME-THYR-1000890

PATIENT
  Age: 79 Year
  Sex: Female
  Weight: 56.6 kg

DRUGS (6)
  1. THYROGEN [Suspect]
     Indication: THERAPEUTIC PROCEDURE
     Dosage: 0.9 MG, QD
     Route: 065
     Dates: start: 20121201, end: 20121202
  2. SODIUM IODIDE (I131) [Concomitant]
     Indication: THERAPEUTIC PROCEDURE
     Dosage: 100 MCI, UNK
     Route: 065
     Dates: start: 20121203, end: 20121203
  3. LEVOTHYROXINE SODIUM [Concomitant]
     Indication: PRODUCT USED FOR UNKNOWN INDICATION
     Dosage: 75 MCG, QD
     Route: 048
  4. PITAVASTATIN CALCIUM [Concomitant]
     Indication: HYPERLIPIDAEMIA
     Dosage: 2 MG, UNK
     Route: 065
  5. MILNACIPRAN HYDROCHLORIDE [Concomitant]
     Indication: DEPRESSION
     Dosage: 15 MG, UNK
     Route: 048
  6. FLUDIAZEPAM [Concomitant]
     Indication: DEPRESSION
     Dosage: 15 MG, UNK
     Route: 048

REACTIONS (3)
  - Atrial fibrillation [Recovered/Resolved]
  - Pleural effusion [Recovered/Resolved]
  - Pyrexia [Recovered/Resolved]
